FAERS Safety Report 16731624 (Version 1)
Quarter: 2019Q3

REPORT INFORMATION
  Report Type: Spontaneous
  Country: DE (occurrence: DE)
  Receive Date: 20190822
  Receipt Date: 20190822
  Transmission Date: 20191005
  Serious: Yes (Other)
  Sender: FDA-Public Use
  Company Number: PHHY2019DE192705

PATIENT
  Sex: Male

DRUGS (12)
  1. FLUDARABINE [Suspect]
     Active Substance: FLUDARABINE PHOSPHATE
     Indication: BONE MARROW CONDITIONING REGIMEN
  2. THIOTEPA. [Suspect]
     Active Substance: THIOTEPA
     Indication: BONE MARROW CONDITIONING REGIMEN
  3. MYCOPHENOLATE MOFETIL. [Suspect]
     Active Substance: MYCOPHENOLATE MOFETIL
     Indication: BONE MARROW CONDITIONING REGIMEN
  4. FLUDARABINE [Suspect]
     Active Substance: FLUDARABINE PHOSPHATE
     Indication: ALLOGENIC STEM CELL TRANSPLANTATION
     Dosage: UNK
     Route: 065
  5. TREOSULFAN [Suspect]
     Active Substance: TREOSULFAN
     Indication: ALLOGENIC STEM CELL TRANSPLANTATION
     Dosage: UNK
     Route: 065
  6. TREOSULFAN [Suspect]
     Active Substance: TREOSULFAN
     Indication: BONE MARROW CONDITIONING REGIMEN
  7. TREOSULFAN [Suspect]
     Active Substance: TREOSULFAN
     Indication: PROPHYLAXIS AGAINST GRAFT VERSUS HOST DISEASE
  8. THIOTEPA. [Suspect]
     Active Substance: THIOTEPA
     Indication: PROPHYLAXIS AGAINST GRAFT VERSUS HOST DISEASE
  9. FLUDARABINE [Suspect]
     Active Substance: FLUDARABINE PHOSPHATE
     Indication: PROPHYLAXIS AGAINST GRAFT VERSUS HOST DISEASE
  10. THIOTEPA. [Suspect]
     Active Substance: THIOTEPA
     Indication: ALLOGENIC STEM CELL TRANSPLANTATION
     Dosage: UNK
     Route: 065
  11. MYCOPHENOLATE MOFETIL. [Suspect]
     Active Substance: MYCOPHENOLATE MOFETIL
     Indication: ALLOGENIC STEM CELL TRANSPLANTATION
     Dosage: UNK
     Route: 065
  12. MYCOPHENOLATE MOFETIL. [Suspect]
     Active Substance: MYCOPHENOLATE MOFETIL
     Indication: PROPHYLAXIS AGAINST GRAFT VERSUS HOST DISEASE

REACTIONS (12)
  - Sight disability [Unknown]
  - Cytomegalovirus infection [Unknown]
  - Cytomegalovirus chorioretinitis [Unknown]
  - Retinal haemorrhage [Unknown]
  - Visual field defect [Unknown]
  - Corneal lesion [Unknown]
  - Retinal exudates [Unknown]
  - Product use in unapproved indication [Unknown]
  - Visual acuity reduced [Unknown]
  - Vitreous floaters [Unknown]
  - Encephalitis [Unknown]
  - CNS ventriculitis [Unknown]
